FAERS Safety Report 24261896 (Version 2)
Quarter: 2024Q4

REPORT INFORMATION
  Report Type: Report from Study
  Country: US (occurrence: US)
  Receive Date: 20240829
  Receipt Date: 20241128
  Transmission Date: 20250115
  Serious: Yes (Hospitalization)
  Sender: BAUSCH AND LOMB
  Company Number: US-BAUSCHBL-2024BNL032064

PATIENT
  Age: 88 Year
  Sex: Male

DRUGS (1)
  1. XIIDRA [Suspect]
     Active Substance: LIFITEGRAST
     Indication: Product used for unknown indication
     Route: 065

REACTIONS (3)
  - Chest pain [Unknown]
  - Fall [Unknown]
  - Hospitalisation [Unknown]

NARRATIVE: CASE EVENT DATE: 20241118
